FAERS Safety Report 7818011-2 (Version None)
Quarter: 2011Q4

REPORT INFORMATION
  Report Type: 
  Country: None (occurrence: None)
  Receive Date: 20111017
  Receipt Date: 20111011
  Transmission Date: 20120403
  Serious: No
  Sender: FDA-Public Use
  Company Number: US-PFIZER INC-2011243858

PATIENT
  Sex: Female

DRUGS (1)
  1. PREMARIN [Suspect]
     Dosage: UNK

REACTIONS (4)
  - EMOTIONAL DISORDER [None]
  - CHEST DISCOMFORT [None]
  - WITHDRAWAL SYNDROME [None]
  - ANXIETY [None]
